FAERS Safety Report 9761257 (Version 2)
Quarter: 2013Q4

REPORT INFORMATION
  Report Type: Report from Study
  Country: US (occurrence: US)
  Receive Date: 20131216
  Receipt Date: 20131227
  Transmission Date: 20140711
  Serious: Yes (Hospitalization, Other)
  Sender: FDA-Public Use
  Company Number: US-PURDUE-USA-2013-0109435

PATIENT
  Age: 64 Year
  Sex: Male

DRUGS (6)
  1. OXY CR TAB [Suspect]
     Indication: OSTEOARTHRITIS
     Dosage: 30 MG, AT NOON
     Route: 048
     Dates: start: 20130913
  2. OXY CR TAB [Suspect]
     Indication: RHEUMATOID ARTHRITIS
     Dosage: 60 MG, BID
     Route: 048
     Dates: start: 20130913
  3. OXY CR TAB [Suspect]
     Indication: FIBROMYALGIA
  4. OXY CR TAB [Suspect]
     Indication: JOINT ANKYLOSIS
  5. WARFARIN [Concomitant]
     Indication: ANTIPLATELET THERAPY
  6. PLAVIX [Concomitant]
     Indication: ANTIPLATELET THERAPY

REACTIONS (4)
  - Haemorrhage [Unknown]
  - Abdominal neoplasm [Unknown]
  - Tumour ulceration [Unknown]
  - Stent placement [Unknown]
